FAERS Safety Report 11310362 (Version 1)
Quarter: 2015Q3

REPORT INFORMATION
  Report Type: Spontaneous
  Country: ES (occurrence: ES)
  Receive Date: 20150724
  Receipt Date: 20150724
  Transmission Date: 20151125
  Serious: Yes (Other)
  Sender: FDA-Public Use
  Company Number: ES-ABBVIE-15P-144-1432028-00

PATIENT
  Age: 45 Year
  Sex: Female

DRUGS (1)
  1. DEPAKINE [Suspect]
     Active Substance: VALPROATE SODIUM
     Indication: MIGRAINE
     Route: 048
     Dates: start: 20110905, end: 20141010

REACTIONS (1)
  - Visual evoked potentials abnormal [Not Recovered/Not Resolved]

NARRATIVE: CASE EVENT DATE: 20140220
